FAERS Safety Report 7341720-9 (Version None)
Quarter: 2011Q1

REPORT INFORMATION
  Report Type: 
  Country: None (occurrence: None)
  Receive Date: 20110309
  Receipt Date: 20090930
  Transmission Date: 20110831
  Serious: Yes (Other)
  Sender: FDA-Public Use
  Company Number: US-BAYER-2011-008455

PATIENT
  Sex: Male
  Weight: 90.703 kg

DRUGS (20)
  1. AMIODARONE [Concomitant]
     Dosage: 200 MG, UNK
     Dates: start: 20060509
  2. ZAROXOLYN [Concomitant]
     Dosage: 2.5 MG, UNK
     Dates: start: 20060509
  3. CLONIDINE [Concomitant]
     Dosage: 0.1 MG, UNK
     Dates: start: 20030101
  4. COREG [Concomitant]
     Dosage: 6.25 MG, UNK
     Dates: start: 20050101
  5. DOXAZOSIN [Concomitant]
     Dosage: 8 MG, UNK
     Dates: start: 20060729
  6. PNEUMOTUSSIN [Concomitant]
     Dosage: UNK
     Dates: start: 20061124
  7. MAVIK [Concomitant]
     Dosage: 2 MG, UNK
     Dates: start: 20060101
  8. ALTACE [Concomitant]
     Dosage: 10 MG, UNK
     Dates: start: 20060509
  9. TRASYLOL [Suspect]
     Indication: CORONARY ARTERY BYPASS
     Dosage: UNK
     Route: 042
     Dates: start: 20060314, end: 20060314
  10. INSULIN [Concomitant]
     Dosage: UNK
     Dates: start: 20030101
  11. ASPIRIN [Concomitant]
     Dosage: 325 MG, UNK
     Dates: start: 20040101
  12. ENALAPRIL MALEATE [Concomitant]
     Dosage: 20 MG, UNK
     Dates: start: 20040101
  13. FUROSEMIDE [Concomitant]
     Dosage: UNK
     Dates: start: 20040619
  14. MICARDIS [Concomitant]
     Dosage: 80/12.5 MG
     Dates: start: 20050101
  15. LISINOPRIL [Concomitant]
     Indication: BLOOD PRESSURE ABNORMAL
     Dosage: UNK
     Dates: start: 20060816
  16. DIOVAN [Concomitant]
     Dosage: 160 MG, UNK
     Dates: start: 20061103
  17. NAPROXEN [Concomitant]
     Dosage: 500 MG, UNK
     Dates: start: 20040101
  18. ZOCOR [Concomitant]
     Dosage: 20 MG, UNK
     Dates: start: 20040101
  19. METFORMIN [Concomitant]
     Dosage: 500 MG, UNK
     Dates: start: 20040101
  20. LEXAPRO [Concomitant]
     Dosage: 10 MG, UNK
     Dates: start: 20060509

REACTIONS (13)
  - INJURY [None]
  - RENAL INJURY [None]
  - NERVOUSNESS [None]
  - RENAL FAILURE [None]
  - ANXIETY [None]
  - ANHEDONIA [None]
  - UNEVALUABLE EVENT [None]
  - PAIN [None]
  - FEAR OF DEATH [None]
  - FEAR [None]
  - DEPRESSION [None]
  - MULTI-ORGAN FAILURE [None]
  - EMOTIONAL DISTRESS [None]
